FAERS Safety Report 25376958 (Version 1)
Quarter: 2025Q2

REPORT INFORMATION
  Report Type: Spontaneous
  Country: US (occurrence: US)
  Receive Date: 20250530
  Receipt Date: 20250530
  Transmission Date: 20250717
  Serious: No
  Sender: CIPLA
  Company Number: US-CIPLA LTD.-2024US09062

PATIENT

DRUGS (5)
  1. ALBUTEROL [Suspect]
     Active Substance: ALBUTEROL
     Indication: Dyspnoea
     Dates: start: 202408
  2. ALBUTEROL [Suspect]
     Active Substance: ALBUTEROL
     Dates: start: 202408
  3. FLUTICASONE PROPIONATE [Concomitant]
     Active Substance: FLUTICASONE PROPIONATE
     Indication: Dyspnoea
     Dosage: UNK, QD (2 SPRAYS ONCE A DAY IN EACH NOSTRIL)
     Route: 045
     Dates: start: 202408
  4. CITALOPRAM [Concomitant]
     Active Substance: CITALOPRAM
     Indication: Crying
     Dosage: 10 MILLIGRAM, BID (2 TABLETS A DAY)/WHITE AND ROUND TABLETS
     Route: 065
     Dates: start: 2022
  5. ASPIRIN [Concomitant]
     Active Substance: ASPIRIN
     Indication: Transient ischaemic attack
     Dosage: 1 DOSAGE FORM, QD (1 TABLET A DAY)
     Route: 065
     Dates: start: 2021

REACTIONS (3)
  - Body height decreased [Unknown]
  - Dyspnoea [Unknown]
  - Device delivery system issue [Unknown]

NARRATIVE: CASE EVENT DATE: 20240101
